FAERS Safety Report 23638375 (Version 3)
Quarter: 2024Q3

REPORT INFORMATION
  Report Type: Spontaneous
  Country: JP (occurrence: JP)
  Receive Date: 20240315
  Receipt Date: 20240718
  Transmission Date: 20241016
  Serious: Yes (Death, Other)
  Sender: ABBVIE
  Company Number: JP-ABBVIE-5680982

PATIENT
  Age: 35 Year
  Sex: Female

DRUGS (2)
  1. VENCLEXTA [Suspect]
     Active Substance: VENETOCLAX
     Indication: Acute myeloid leukaemia
     Dosage: FORM STRENGTH: 100 MILLIGRAM, 4 COURSES
     Route: 048
  2. AZACITIDINE [Concomitant]
     Active Substance: AZACITIDINE
     Indication: Acute myeloid leukaemia
     Dosage: 55 PERCENT DOSE, 7 DAYS - 1 COURSE, 5 DAYS -3 COURSE
     Route: 042

REACTIONS (4)
  - Acute myeloid leukaemia [Fatal]
  - Drug ineffective [Unknown]
  - Multiple organ dysfunction syndrome [Unknown]
  - Tumour marker increased [Unknown]
